FAERS Safety Report 7843149-3 (Version None)
Quarter: 2011Q4

REPORT INFORMATION
  Report Type: 
  Country: None (occurrence: None)
  Receive Date: 20111025
  Receipt Date: 20111021
  Transmission Date: 20120403
  Serious: No
  Sender: FDA-Public Use
  Company Number: US-PFIZER INC-2011256114

PATIENT
  Sex: Male
  Weight: 90.703 kg

DRUGS (10)
  1. RANEXA [Concomitant]
     Dosage: 500 MG, 2X/DAY
  2. VYTORIN [Concomitant]
     Dosage: EZETIMIBE 10 MG/SIMVASTATIN 40 MG, 1X/DAY
  3. CEREFOLIN [Concomitant]
     Dosage: UNK, ONCE A DAY
  4. CHANTIX [Suspect]
     Indication: SMOKING CESSATION THERAPY
     Dosage: 0.5 MG, 1X/DAY
     Route: 048
     Dates: start: 20111007, end: 20111001
  5. ASPIRIN [Concomitant]
     Dosage: 81 MG, UNK
  6. TIZANIDINE [Concomitant]
     Indication: INJURY
     Dosage: 4 MG, UNK
     Route: 048
  7. CHANTIX [Suspect]
     Dosage: 1 MG, 2X/DAY
     Route: 048
     Dates: start: 20111001
  8. LASIX [Concomitant]
     Indication: FLUID RETENTION
     Dosage: 20 MG, 1X/DAY
     Route: 048
  9. LEXAPRO [Concomitant]
     Dosage: 20 MG, 1X/DAY
  10. NORVASC [Concomitant]
     Dosage: 5 MG, 1X/DAY

REACTIONS (5)
  - ENERGY INCREASED [None]
  - WEIGHT DECREASED [None]
  - DECREASED APPETITE [None]
  - SLEEP DISORDER [None]
  - AGITATION [None]
